FAERS Safety Report 4573063-0 (Version None)
Quarter: 2005Q1

REPORT INFORMATION
  Report Type: 
  Country: None (occurrence: None)
  Receive Date: 20050204
  Receipt Date: 20050126
  Transmission Date: 20050727
  Serious: Yes (Other)
  Sender: FDA-Public Use
  Company Number: GXKR2005JP00517

PATIENT
  Age: 34 Year
  Sex: Male

DRUGS (6)
  1. RIMACTANE [Suspect]
     Indication: TUBERCULOSIS GASTROINTESTINAL
     Dosage: 300 MG, ORAL
     Route: 048
     Dates: start: 20040101
  2. ISONIAZID [Suspect]
     Indication: TUBERCULOSIS GASTROINTESTINAL
     Dosage: 200 MG
     Dates: start: 20040101
  3. PRYRAZINAMIDE (NGX) (PYRAZINAMIDE) [Suspect]
     Indication: TUBERCULOSIS GASTROINTESTINAL
     Dosage: 1 MG
     Dates: start: 20040101
  4. ETHAMBUTOL HYDROCHLORIDE [Suspect]
     Indication: TUBERCULOSIS GASTROINTESTINAL
     Dosage: 500 MG
     Dates: start: 20040101
  5. TACROLIMUS (TACROLIMUS) [Concomitant]
  6. DEOXYSPERGUALIN [Concomitant]

REACTIONS (2)
  - BLOOD CREATININE INCREASED [None]
  - HAEMODIALYSIS [None]
